FAERS Safety Report 9613644 (Version 2)
Quarter: 2013Q4

REPORT INFORMATION
  Report Type: Report from Study
  Country: IT (occurrence: IT)
  Receive Date: 20131010
  Receipt Date: 20131111
  Transmission Date: 20140711
  Serious: Yes (Life-Threatening, Hospitalization)
  Sender: FDA-Public Use
  Company Number: IT-009507513-1310ITA004400

PATIENT
  Age: 60 Year
  Sex: Female

DRUGS (5)
  1. MK-0000 [Suspect]
  2. TEMOZOLOMIDE [Suspect]
     Indication: GLIOBLASTOMA
     Dosage: 75 MG/M2, QD,  WITH RADIATION THERAPY FOR 6 WEEKS
     Route: 048
  3. TEMOZOLOMIDE [Suspect]
     Dosage: ADJUVANT FOR 6 CYCLES (150 TO 200 MG/M2 FOR 5 D DURING EACH 28-D CYCLE)
  4. LEVETIRACETAM [Concomitant]
  5. OMEPRAZOLE [Concomitant]
     Indication: ANTACID THERAPY

REACTIONS (1)
  - Bone marrow toxicity [Unknown]
